FAERS Safety Report 7557697-7 (Version None)
Quarter: 2011Q2

REPORT INFORMATION
  Report Type: 
  Country: None (occurrence: None)
  Receive Date: 20110620
  Receipt Date: 20110608
  Transmission Date: 20111010
  Serious: Yes (Other)
  Sender: FDA-Public Use
  Company Number: BE-AMGEN-BELCT2011027447

PATIENT
  Age: 54 Year
  Sex: Female

DRUGS (5)
  1. EPIRUBICIN [Concomitant]
     Dosage: UNK
     Dates: start: 20110316
  2. TAXOTERE [Concomitant]
     Dosage: 166 MG, Q3WK
     Route: 042
     Dates: start: 20110518
  3. DENOSUMAB [Suspect]
     Indication: BREAST CANCER
     Dosage: UNK UNK, Q3WK
     Route: 058
     Dates: start: 20110406
  4. CYCLOPHOSPHAMIDE [Concomitant]
     Dosage: UNK
     Dates: start: 20110316
  5. FLUOROURACIL [Concomitant]
     Dosage: UNK
     Dates: start: 20110316

REACTIONS (1)
  - HEPATIC ENZYME INCREASED [None]
